FAERS Safety Report 6652911-4 (Version None)
Quarter: 2010Q1

REPORT INFORMATION
  Report Type: 
  Country: None (occurrence: None)
  Receive Date: 20100326
  Receipt Date: 20100316
  Transmission Date: 20100710
  Serious: Yes (Hospitalization)
  Sender: FDA-Public Use
  Company Number: US-NOVOPROD-305887

PATIENT
  Sex: Female

DRUGS (5)
  1. VICTOZA [Suspect]
     Indication: DIABETES MELLITUS
     Dosage: UNKNOWN
     Dates: start: 20100301
  2. VICTOZA [Suspect]
     Dosage: UNKNOWN
     Dates: end: 20100310
  3. ACTOS [Concomitant]
     Indication: TYPE 2 DIABETES MELLITUS
     Dosage: 30 MG, QD
  4. ACTOS [Concomitant]
     Dosage: 15 MG, QD
  5. AVALIDE [Concomitant]
     Indication: BLOOD PRESSURE INCREASED
     Dosage: UNKNOWN

REACTIONS (3)
  - DEHYDRATION [None]
  - NAUSEA [None]
  - VOMITING [None]
